FAERS Safety Report 25354396 (Version 2)
Quarter: 2025Q2

REPORT INFORMATION
  Report Type: Report from Study
  Country: FR (occurrence: FR)
  Receive Date: 20250523
  Receipt Date: 20250617
  Transmission Date: 20250716
  Serious: Yes (Hospitalization, Other)
  Sender: NOVARTIS
  Company Number: FR-002147023-NVSC2024FR141712

PATIENT
  Sex: Female
  Weight: 92 kg

DRUGS (3)
  1. KISQALI [Suspect]
     Active Substance: RIBOCICLIB SUCCINATE
     Indication: Hormone receptor positive HER2 negative breast cancer
     Dosage: 600 MG, QD
     Route: 048
     Dates: start: 20240606, end: 20240618
  2. KISQALI [Suspect]
     Active Substance: RIBOCICLIB SUCCINATE
     Dosage: 400 MG, QD
     Route: 048
     Dates: start: 20240618, end: 20241119
  3. KISQALI [Suspect]
     Active Substance: RIBOCICLIB SUCCINATE
     Dosage: 200 MG, QD
     Route: 048
     Dates: start: 20241119

REACTIONS (8)
  - Pyelonephritis acute [Recovered/Resolved]
  - Electrocardiogram QT prolonged [Recovered/Resolved]
  - Deafness [Recovering/Resolving]
  - Asthenia [Recovering/Resolving]
  - Diarrhoea [Recovered/Resolved]
  - Productive cough [Recovered/Resolved]
  - Head injury [Recovered/Resolved]
  - Diarrhoea [Recovering/Resolving]

NARRATIVE: CASE EVENT DATE: 20240618
